FAERS Safety Report 11402130 (Version 1)
Quarter: 2015Q3

REPORT INFORMATION
  Report Type: Spontaneous
  Country: US (occurrence: US)
  Receive Date: 20150821
  Receipt Date: 20150821
  Transmission Date: 20151125
  Serious: Yes (Life-Threatening, Hospitalization)
  Sender: FDA-Public Use
  Company Number: US-ROCHE-1356033

PATIENT
  Sex: Female

DRUGS (2)
  1. RIBAVIRIN. [Suspect]
     Active Substance: RIBAVIRIN
     Indication: HEPATITIS C
     Route: 065
  2. PEGASYS [Suspect]
     Active Substance: PEGINTERFERON ALFA-2A
     Indication: HEPATITIS C
     Route: 065
     Dates: start: 2009, end: 2009

REACTIONS (13)
  - Back pain [Unknown]
  - Dry skin [Not Recovered/Not Resolved]
  - Hunger [Not Recovered/Not Resolved]
  - Pallor [Not Recovered/Not Resolved]
  - Skin wrinkling [Unknown]
  - Headache [Unknown]
  - Feeding disorder [Not Recovered/Not Resolved]
  - Skin mass [Not Recovered/Not Resolved]
  - Feeling cold [Not Recovered/Not Resolved]
  - Hepatic cirrhosis [Not Recovered/Not Resolved]
  - Haemangioma [Not Recovered/Not Resolved]
  - Weight decreased [Not Recovered/Not Resolved]
  - Dyschezia [Not Recovered/Not Resolved]
